FAERS Safety Report 10151864 (Version 1)
Quarter: 2014Q2

REPORT INFORMATION
  Report Type: Spontaneous
  Country: US (occurrence: None)
  Receive Date: 20140501
  Receipt Date: 20140501
  Transmission Date: 20141212
  Serious: Yes (Hospitalization)
  Sender: FDA-Public Use
  Company Number: 2307308

PATIENT
  Age: 42 Year
  Sex: Female

DRUGS (6)
  1. PACLITAXEL [Suspect]
     Indication: INVASIVE DUCTAL BREAST CARCINOMA
  2. ADRIAMYCIN /00330901/ [Suspect]
     Indication: INVASIVE DUCTAL BREAST CARCINOMA
  3. CYCLOPHOSPHAMIDE [Suspect]
     Indication: INVASIVE DUCTAL BREAST CARCINOMA
  4. DOCUSATE SODIUM [Concomitant]
  5. MORPHINE [Concomitant]
  6. PREGABALIN [Concomitant]

REACTIONS (4)
  - Abdominal pain [None]
  - Nausea [None]
  - Vomiting [None]
  - Acute hepatitis C [None]
